FAERS Safety Report 18294063 (Version 2)
Quarter: 2020Q4

REPORT INFORMATION
  Report Type: Other
  Country: CA (occurrence: CA)
  Receive Date: 20200922
  Receipt Date: 20201130
  Transmission Date: 20210113
  Serious: Yes (Other)
  Sender: FDA-Public Use
  Company Number: CA-CELLTRION INC.-2020CA025747

PATIENT

DRUGS (17)
  1. RITUXIMAB (UNKNOWN) [Suspect]
     Active Substance: RITUXIMAB
     Dosage: 1000.0 MG
     Route: 042
  2. METHOTREXATE. [Concomitant]
     Active Substance: METHOTREXATE
  3. TURMERIC [CURCUMA LONGA] [Concomitant]
     Active Substance: HERBALS\TURMERIC
  4. BENADRYL [Concomitant]
     Active Substance: DIPHENHYDRAMINE HYDROCHLORIDE
     Route: 061
  5. NAPROXEN. [Concomitant]
     Active Substance: NAPROXEN
     Route: 065
  6. PREVACID [Concomitant]
     Active Substance: LANSOPRAZOLE
  7. MARIJUANA [Concomitant]
     Active Substance: CANNABIS SATIVA SUBSP. INDICA TOP
  8. RITUXIMAB (UNKNOWN) [Suspect]
     Active Substance: RITUXIMAB
     Indication: RHEUMATOID ARTHRITIS
     Dosage: 1000.0 MG
     Route: 042
  9. FOLIC ACID. [Concomitant]
     Active Substance: FOLIC ACID
  10. TYLENOL [Concomitant]
     Active Substance: ACETAMINOPHEN
     Dosage: 650.0 MG
     Route: 048
  11. DIPHENHYDRAMINE. [Concomitant]
     Active Substance: DIPHENHYDRAMINE
     Indication: PREMEDICATION
     Dosage: 50.0 MG
     Route: 048
  12. ACETAMINOPHEN. [Concomitant]
     Active Substance: ACETAMINOPHEN
     Dosage: 650.0 MG
     Route: 048
  13. BLEXTEN [Concomitant]
     Active Substance: BILASTINE
  14. METHYLPREDNISOLONE. [Concomitant]
     Active Substance: METHYLPREDNISOLONE
     Indication: PREMEDICATION
     Dosage: 100.0 MG
     Route: 042
  15. PLAQUENIL [Concomitant]
     Active Substance: HYDROXYCHLOROQUINE SULFATE
  16. REACTINE [CETIRIZINE HYDROCHLORIDE] [Concomitant]
     Active Substance: CETIRIZINE HYDROCHLORIDE
     Route: 065
  17. SOLU-MEDROL [Concomitant]
     Active Substance: METHYLPREDNISOLONE SODIUM SUCCINATE
     Dosage: 100.0 MG
     Route: 042

REACTIONS (11)
  - Gallbladder disorder [Not Recovered/Not Resolved]
  - Weight increased [Not Recovered/Not Resolved]
  - Blood pressure diastolic decreased [Not Recovered/Not Resolved]
  - Localised infection [Not Recovered/Not Resolved]
  - Urticaria [Not Recovered/Not Resolved]
  - Blood pressure diastolic abnormal [Not Recovered/Not Resolved]
  - Cholelithiasis [Not Recovered/Not Resolved]
  - Blood pressure diastolic increased [Not Recovered/Not Resolved]
  - Hypertension [Not Recovered/Not Resolved]
  - Decreased activity [Not Recovered/Not Resolved]
  - Blood pressure increased [Not Recovered/Not Resolved]
